FAERS Safety Report 8572964-6 (Version None)
Quarter: 2012Q3

REPORT INFORMATION
  Report Type: 
  Country: None (occurrence: None)
  Receive Date: 20120806
  Receipt Date: 20120803
  Transmission Date: 20120928
  Serious: Yes (Other)
  Sender: FDA-Public Use
  Company Number: JP-ABBOTT-11P-087-0845570-00

PATIENT
  Sex: Female

DRUGS (3)
  1. HUMIRA [Suspect]
     Indication: CROHN'S DISEASE
     Dosage: 160 MG
     Route: 058
     Dates: start: 20110525, end: 20110525
  2. HUMIRA [Suspect]
     Route: 058
  3. HUMIRA [Suspect]

REACTIONS (1)
  - ANAEMIA [None]
